FAERS Safety Report 17021583 (Version 1)
Quarter: 2019Q4

REPORT INFORMATION
  Report Type: Spontaneous
  Country: US (occurrence: US)
  Receive Date: 20191112
  Receipt Date: 20191112
  Transmission Date: 20200122
  Serious: No
  Sender: FDA-Public Use
  Company Number: US-BAYER-2019-202830

PATIENT
  Age: 73 Year
  Sex: Female
  Weight: 90.72 kg

DRUGS (1)
  1. ALEVE [Suspect]
     Active Substance: NAPROXEN SODIUM
     Indication: PAIN
     Dosage: 1 DF, QD
     Route: 048
     Dates: start: 2017

REACTIONS (2)
  - Incorrect dose administered [None]
  - Incorrect product administration duration [Unknown]

NARRATIVE: CASE EVENT DATE: 2017
